FAERS Safety Report 5788867-6 (Version None)
Quarter: 2008Q2

REPORT INFORMATION
  Report Type: 
  Country: None (occurrence: None)
  Receive Date: 20080626
  Receipt Date: 20080110
  Transmission Date: 20081010
  Serious: No
  Sender: FDA-Public Use
  Company Number: US-ASTRAZENECA-2007UW26471

PATIENT
  Age: 45 Year
  Sex: Female
  Weight: 60.8 kg

DRUGS (3)
  1. PULMICORT FLEXHALER [Suspect]
     Indication: ASTHMA
     Route: 055
  2. ALBUTEROL [Concomitant]
  3. CHILDREN'S DYE FREE BENADRYL [Concomitant]

REACTIONS (3)
  - NASAL CONGESTION [None]
  - PAIN [None]
  - SINUS HEADACHE [None]
